FAERS Safety Report 9152971 (Version 1)
Quarter: 2013Q1

REPORT INFORMATION
  Report Type: Spontaneous
  Country: US (occurrence: US)
  Receive Date: 20130213
  Receipt Date: 20130213
  Transmission Date: 20140127
  Serious: Yes (Other)
  Sender: FDA-Public Use
  Company Number: US-RB-049593-13

PATIENT
  Age: 30 Year
  Sex: Male

DRUGS (3)
  1. MUCINEX FAST-MAX SEVERE CONGESTION AND COUGH [Suspect]
     Indication: COUGH
     Dosage: ON 29-JAN-2013, 1 EVERY 6-8 HRS
     Route: 048
     Dates: start: 20130129
  2. MUCINEX FAST-MAX SEVERE CONGESTION AND COLD [Suspect]
  3. MUCINEX FAST-MAX SEVERE CONGESTION AND COUGH [Suspect]

REACTIONS (3)
  - Blood pressure increased [Not Recovered/Not Resolved]
  - Mucosal haemorrhage [Not Recovered/Not Resolved]
  - Mucosal discolouration [Not Recovered/Not Resolved]
